FAERS Safety Report 9826296 (Version 1)
Quarter: 2013Q4

REPORT INFORMATION
  Report Type: Spontaneous
  Country: US (occurrence: None)
  Receive Date: 20131223
  Receipt Date: 20131223
  Transmission Date: 20140711
  Serious: Yes (Other)
  Sender: FDA-Public Use
  Company Number: 219937LEO

PATIENT
  Sex: Female

DRUGS (3)
  1. PICATO [Suspect]
     Indication: ACTINIC KERATOSIS
     Route: 061
     Dates: start: 20121213, end: 20121214
  2. EVISTA (RALOXIFENE) (TABLET) [Concomitant]
  3. FORTEO (TERIPARATIDE) (INJECTION) [Concomitant]

REACTIONS (9)
  - Application site erythema [None]
  - Eyelid oedema [None]
  - Skin erosion [None]
  - Application site exfoliation [None]
  - Application site vesicles [None]
  - Application site exfoliation [None]
  - Drug administered at inappropriate site [None]
  - Drug administration error [None]
  - Inappropriate schedule of drug administration [None]
